FAERS Safety Report 4809145-5 (Version None)
Quarter: 2005Q4

REPORT INFORMATION
  Report Type: 
  Country: None (occurrence: None)
  Receive Date: 20051021
  Receipt Date: 20020920
  Transmission Date: 20060501
  Serious: Yes (Life-Threatening)
  Sender: FDA-Public Use
  Company Number: EWC020932456

PATIENT
  Age: 24 Year
  Sex: Male

DRUGS (5)
  1. ZYPREXA [Suspect]
     Indication: PSYCHOTIC DISORDER
     Dosage: 30 MG/IN THE EVENING
     Dates: start: 20020529
  2. ZYPREXA [Suspect]
     Indication: SCHIZOPHRENIA
     Dosage: 30 MG/IN THE EVENING
     Dates: start: 20020529
  3. NOZINAN (LEVOMEPROMAZINE) [Concomitant]
  4. FLUNIPAM (FLUNITRAZEPAM) [Concomitant]
  5. OXAZEPAM [Concomitant]

REACTIONS (5)
  - BLOOD FIBRINOGEN INCREASED [None]
  - C-REACTIVE PROTEIN INCREASED [None]
  - FIBRIN D DIMER INCREASED [None]
  - HAEMOPTYSIS [None]
  - PULMONARY EMBOLISM [None]
